FAERS Safety Report 15639922 (Version 2)
Quarter: 2018Q4

REPORT INFORMATION
  Report Type: Spontaneous
  Country: US (occurrence: US)
  Receive Date: 20181120
  Receipt Date: 20181218
  Transmission Date: 20190205
  Serious: No
  Sender: FDA-Public Use
  Company Number: US-PFIZER INC-2018472689

PATIENT
  Age: 63 Year
  Sex: Female
  Weight: 56.7 kg

DRUGS (4)
  1. TYLENOL [Concomitant]
     Active Substance: ACETAMINOPHEN
     Dosage: 1000-3000 MG/DAY
     Dates: start: 20181022
  2. GABAPENTIN. [Suspect]
     Active Substance: GABAPENTIN
     Indication: BURNING SENSATION
     Dosage: 300 MG, 3X/DAY
  3. GABAPENTIN. [Suspect]
     Active Substance: GABAPENTIN
     Indication: PAIN IN EXTREMITY
     Dosage: 300 MG, 1X/DAY
     Dates: start: 20181026
  4. GABAPENTIN. [Suspect]
     Active Substance: GABAPENTIN
     Indication: HYPOAESTHESIA
     Dosage: CONTINUE TO TAKE 100 MG-200 MG AT NIGHT
     Dates: end: 20181105

REACTIONS (4)
  - Drug ineffective for unapproved indication [Unknown]
  - Dizziness [Recovered/Resolved]
  - Loss of personal independence in daily activities [Unknown]
  - Somnolence [Unknown]

NARRATIVE: CASE EVENT DATE: 20181026
